FAERS Safety Report 20531300 (Version 3)
Quarter: 2022Q2

REPORT INFORMATION
  Report Type: Spontaneous
  Country: JP (occurrence: JP)
  Receive Date: 20220301
  Receipt Date: 20220614
  Transmission Date: 20220721
  Serious: No
  Sender: FDA-Public Use
  Company Number: JP-GLAXOSMITHKLINE-JP2022JPN035278

PATIENT

DRUGS (5)
  1. SOTROVIMAB [Suspect]
     Active Substance: SOTROVIMAB
     Indication: COVID-19
     Dosage: 500 MG/DAY
     Route: 041
     Dates: start: 20220221, end: 20220221
  2. TRANEXAMIC ACID [Suspect]
     Active Substance: TRANEXAMIC ACID
     Indication: Oropharyngeal pain
     Dosage: 1500 MG/DAY
     Route: 048
     Dates: start: 20220221, end: 20220227
  3. DEXTROMETHORPHAN HYDROBROMIDE [Suspect]
     Active Substance: DEXTROMETHORPHAN HYDROBROMIDE
     Indication: Cough
     Dosage: 45 MG/DAY
     Route: 048
     Dates: start: 20220221, end: 20220227
  4. CARBOCYSTEINE [Suspect]
     Active Substance: CARBOCYSTEINE
     Indication: Productive cough
     Dosage: 1500 MG/DAY
     Route: 048
     Dates: start: 20220221, end: 20220221
  5. FEXOFENADINE [Suspect]
     Active Substance: FEXOFENADINE HYDROCHLORIDE
     Indication: Seasonal allergy
     Dosage: 120 MG/DAY
     Route: 048
     Dates: start: 20220317, end: 20220326

REACTIONS (2)
  - Exposure during pregnancy [Unknown]
  - Live birth [Unknown]
